FAERS Safety Report 7810873-8 (Version None)
Quarter: 2011Q4

REPORT INFORMATION
  Report Type: 
  Country: None (occurrence: None)
  Receive Date: 20111013
  Receipt Date: 20110930
  Transmission Date: 20120403
  Serious: Yes (Hospitalization, Other)
  Sender: FDA-Public Use
  Company Number: QA-JNJFOC-20111004720

PATIENT
  Age: 27 Year
  Sex: Male

DRUGS (1)
  1. TRAMADOL HCL [Suspect]
     Indication: PANIC ATTACK
     Route: 048

REACTIONS (8)
  - MONOPARESIS [None]
  - HYPERSOMNIA [None]
  - BACK PAIN [None]
  - RHABDOMYOLYSIS [None]
  - RENAL FAILURE ACUTE [None]
  - ABASIA [None]
  - OVERDOSE [None]
  - IMMOBILISATION PROLONGED [None]
